FAERS Safety Report 12210093 (Version 3)
Quarter: 2016Q4

REPORT INFORMATION
  Report Type: Spontaneous
  Country: US (occurrence: US)
  Receive Date: 20160325
  Receipt Date: 20161018
  Transmission Date: 20170207
  Serious: No
  Sender: FDA-Public Use
  Company Number: US-ASTRAZENECA-2016SE16824

PATIENT
  Age: 28118 Day
  Sex: Female
  Weight: 83.9 kg

DRUGS (17)
  1. MELOXICAN [Concomitant]
     Active Substance: MELOXICAM
     Indication: ARTHRITIS
     Route: 048
  2. GLYBURIDE/METFORMIN [Concomitant]
     Active Substance: GLYBURIDE\METFORMIN
     Indication: ATRIAL FIBRILLATION
     Dosage: 5/500 MG 1/2 TABLET DAILY
     Route: 048
  3. FISH OIL [Concomitant]
     Active Substance: FISH OIL
     Indication: BLOOD CHOLESTEROL ABNORMAL
     Route: 048
  4. GLYBURIDE. [Concomitant]
     Active Substance: GLYBURIDE
     Indication: DIABETES MELLITUS
     Dosage: 5/500 MG 1/2 TABLET DAILY
  5. METFORMIN [Concomitant]
     Active Substance: METFORMIN HYDROCHLORIDE
     Indication: DIABETES MELLITUS
     Dosage: 5/500 MG 1/2 TABLET DAILY
  6. SIMVASTATIN. [Concomitant]
     Active Substance: SIMVASTATIN
     Indication: BLOOD TRIGLYCERIDES
     Route: 048
  7. HYDROCHLOROTHIAZIDE. [Concomitant]
     Active Substance: HYDROCHLOROTHIAZIDE
     Indication: SUPPLEMENTATION THERAPY
     Route: 048
  8. LATANOPROST. [Concomitant]
     Active Substance: LATANOPROST
     Indication: EYE DISORDER
     Dosage: AT NIGHT
     Route: 047
  9. CINNAMON. [Concomitant]
     Active Substance: CINNAMON
     Indication: BLOOD GLUCOSE ABNORMAL
     Route: 048
  10. BYDUREON [Suspect]
     Active Substance: EXENATIDE
     Indication: TYPE 2 DIABETES MELLITUS
     Route: 058
     Dates: start: 20160128
  11. LEVOXYL [Concomitant]
     Active Substance: LEVOTHYROXINE SODIUM
     Indication: THYROID DISORDER
     Route: 048
     Dates: start: 1976
  12. TOPIRAMATE. [Concomitant]
     Active Substance: TOPIRAMATE
     Indication: HEADACHE
     Route: 048
     Dates: start: 2010
  13. CENTRUM SILVER [Concomitant]
     Active Substance: MINERALS\VITAMINS
     Dosage: DAILY
     Route: 048
  14. ASPIRIN. [Concomitant]
     Active Substance: ASPIRIN
     Route: 048
  15. WARFARIN [Concomitant]
     Active Substance: WARFARIN
     Indication: ATRIAL FIBRILLATION
     Route: 048
     Dates: start: 2007
  16. ATENOLOL. [Suspect]
     Active Substance: ATENOLOL
     Indication: BLOOD PRESSURE ABNORMAL
     Route: 048
     Dates: start: 1992
  17. CALTRATE +D [Concomitant]
     Indication: HYSTERECTOMY
     Dosage: DAILY
     Route: 048

REACTIONS (5)
  - Underdose [Unknown]
  - Device leakage [Unknown]
  - Increased appetite [Unknown]
  - Blood glucose increased [Unknown]
  - Device malfunction [Unknown]

NARRATIVE: CASE EVENT DATE: 20160128
